FAERS Safety Report 6997094-6 (Version None)
Quarter: 2010Q3

REPORT INFORMATION
  Report Type: 
  Country: None (occurrence: None)
  Receive Date: 20100918
  Receipt Date: 20090901
  Transmission Date: 20110219
  Serious: No
  Sender: FDA-Public Use
  Company Number: US-WYE-H10800909

PATIENT
  Sex: Female

DRUGS (6)
  1. EFFEXOR XR [Suspect]
     Route: 048
     Dates: start: 20090601
  2. METOPROLOL [Concomitant]
  3. FIORICET [Concomitant]
  4. CLONAZEPAM [Concomitant]
  5. VENLAFAXINE HYDROCHLORIDE [Concomitant]
  6. SOMA [Concomitant]

REACTIONS (1)
  - MEDICATION RESIDUE [None]
